FAERS Safety Report 7596653-X (Version None)
Quarter: 2011Q3

REPORT INFORMATION
  Report Type: 
  Country: None (occurrence: None)
  Receive Date: 20110708
  Receipt Date: 20110628
  Transmission Date: 20111222
  Serious: Yes (Death, Other)
  Sender: FDA-Public Use
  Company Number: US-CELGENEUS-163-21880-11063795

PATIENT
  Age: 58 Year
  Sex: Female

DRUGS (7)
  1. REVLIMID [Suspect]
     Indication: MYELODYSPLASTIC SYNDROME
     Dosage: 5 MILLIGRAM
     Route: 048
     Dates: start: 20100701, end: 20100901
  2. VIDAZA [Suspect]
     Route: 065
     Dates: start: 20101001
  3. CYANOCOBALAMIN [Concomitant]
     Route: 065
  4. ASPIRIN [Concomitant]
     Route: 065
  5. ACYCLOVIR [Concomitant]
     Route: 065
  6. FOLIC ACID [Concomitant]
     Route: 065
  7. LORAZEPAM [Concomitant]
     Route: 065

REACTIONS (3)
  - DEATH [None]
  - PANCYTOPENIA [None]
  - CYTOGENETIC ABNORMALITY [None]
